FAERS Safety Report 6526876-X (Version None)
Quarter: 2010Q1

REPORT INFORMATION
  Report Type: 
  Country: None (occurrence: None)
  Receive Date: 20100105
  Receipt Date: 20091222
  Transmission Date: 20100710
  Serious: Yes (Other)
  Sender: FDA-Public Use
  Company Number: PHHY2009BR57856

PATIENT
  Age: 52 Year
  Sex: Female
  Weight: 65 kg

DRUGS (2)
  1. FORASEQ [Suspect]
     Indication: ASTHMA
     Dosage: 1 DF, BID
  2. FORASEQ [Suspect]
     Dosage: 1 DF, QD

REACTIONS (3)
  - DYSPNOEA [None]
  - INCORRECT DOSE ADMINISTERED [None]
  - URINARY INCONTINENCE [None]
